FAERS Safety Report 17983489 (Version 2)
Quarter: 2020Q3

REPORT INFORMATION
  Report Type: Spontaneous
  Country: FR (occurrence: FR)
  Receive Date: 20200706
  Receipt Date: 20200709
  Transmission Date: 20201103
  Serious: Yes (Hospitalization)
  Sender: FDA-Public Use
  Company Number: FR-MYLANLABS-2020M1061178

PATIENT
  Age: 71 Year
  Sex: Male

DRUGS (8)
  1. VENLAFAXINE [Suspect]
     Active Substance: VENLAFAXINE HYDROCHLORIDE
     Indication: BEREAVEMENT
     Dosage: 4 DOSAGE FORM, QD (4TAB/DAY THEN DECREASED TO 3TAB/DAY)
     Route: 048
     Dates: start: 20200523
  2. ALPRAZOLAM. [Suspect]
     Active Substance: ALPRAZOLAM
     Indication: PRODUCT USED FOR UNKNOWN INDICATION
     Dosage: UNK
     Route: 048
     Dates: start: 20190118
  3. FUROSEMIDE. [Suspect]
     Active Substance: FUROSEMIDE
     Indication: CARDIOMYOPATHY
     Dosage: 20 MILLIGRAM, QD
     Route: 048
     Dates: start: 201810
  4. MIRTAZAPINE. [Suspect]
     Active Substance: MIRTAZAPINE
     Indication: BEREAVEMENT
     Dosage: 30 MILLIGRAM, QD
     Route: 048
  5. BISOPROLOL [Suspect]
     Active Substance: BISOPROLOL
     Indication: CARDIOMYOPATHY
     Dosage: 5 MILLIGRAM, QD
     Route: 048
     Dates: start: 201810
  6. FLUOXETINE [Suspect]
     Active Substance: FLUOXETINE HYDROCHLORIDE
     Indication: BEREAVEMENT
     Dosage: UNK, NON RENSEIGN?E
     Route: 048
     Dates: start: 20190311, end: 20190522
  7. AMLODIPINE [Suspect]
     Active Substance: AMLODIPINE BESYLATE
     Indication: CARDIOMYOPATHY
     Dosage: 5 MILLIGRAM, QD
     Route: 048
     Dates: start: 201811
  8. PAROXETINE. [Concomitant]
     Active Substance: PAROXETINE
     Indication: DEPRESSION
     Dosage: UNK
     Route: 048
     Dates: start: 20190118, end: 20190310

REACTIONS (3)
  - Condition aggravated [Not Recovered/Not Resolved]
  - Rhabdomyolysis [Recovered/Resolved]
  - Myalgia [Not Recovered/Not Resolved]

NARRATIVE: CASE EVENT DATE: 20190525
